FAERS Safety Report 5676391-0 (Version None)
Quarter: 2008Q1

REPORT INFORMATION
  Report Type: 
  Country: None (occurrence: None)
  Receive Date: 20080321
  Receipt Date: 20080310
  Transmission Date: 20080703
  Serious: Yes (Hospitalization, Other)
  Sender: FDA-Public Use
  Company Number: US-PFIZER INC-2008023317

PATIENT
  Sex: Female

DRUGS (1)
  1. CHANTIX [Suspect]
     Dates: start: 20080101, end: 20080101

REACTIONS (5)
  - DELUSIONAL PERCEPTION [None]
  - FLAT AFFECT [None]
  - INTENTIONAL DRUG MISUSE [None]
  - PARANOIA [None]
  - URINARY TRACT INFECTION [None]
